FAERS Safety Report 23884722 (Version 1)
Quarter: 2024Q2

REPORT INFORMATION
  Report Type: Spontaneous
  Country: FR (occurrence: FR)
  Receive Date: 20240522
  Receipt Date: 20240522
  Transmission Date: 20240716
  Serious: Yes (Hospitalization)
  Sender: FDA-Public Use
  Company Number: None

PATIENT
  Age: 19 Year
  Sex: Female
  Weight: 45 kg

DRUGS (8)
  1. ABILIFY [Suspect]
     Active Substance: ARIPIPRAZOLE
     Indication: Bipolar II disorder
     Dosage: 20 MG, QD
     Route: 048
     Dates: start: 20230720, end: 20231011
  2. ABILIFY [Suspect]
     Active Substance: ARIPIPRAZOLE
     Dosage: 30 MG, QD
     Route: 048
     Dates: start: 20231011, end: 202402
  3. ABILIFY [Suspect]
     Active Substance: ARIPIPRAZOLE
     Dosage: 20 MG, QD
     Route: 048
     Dates: start: 202402, end: 20240223
  4. LITHIUM [Suspect]
     Active Substance: LITHIUM
     Indication: Bipolar II disorder
     Dosage: 600 MG, QD
     Route: 048
     Dates: start: 20230720, end: 20230906
  5. LITHIUM [Suspect]
     Active Substance: LITHIUM
     Dosage: 800 MG, QD
     Route: 048
     Dates: start: 20230906, end: 20231011
  6. LITHIUM [Suspect]
     Active Substance: LITHIUM
     Dosage: 875 MG, QD
     Route: 048
     Dates: start: 20231011, end: 20240103
  7. LITHIUM [Suspect]
     Active Substance: LITHIUM
     Dosage: 1000 MG, QD
     Route: 048
     Dates: start: 20240103, end: 202402
  8. LITHIUM [Suspect]
     Active Substance: LITHIUM
     Dosage: 1250 MG, QD
     Route: 048
     Dates: start: 202402, end: 20240223

REACTIONS (3)
  - Premature delivery [Recovered/Resolved]
  - Maternal exposure during pregnancy [Recovered/Resolved]
  - Product use in unapproved indication [Unknown]

NARRATIVE: CASE EVENT DATE: 20230720
